FAERS Safety Report 7319522-9 (Version None)
Quarter: 2011Q1

REPORT INFORMATION
  Report Type: 
  Country: None (occurrence: None)
  Receive Date: 20110228
  Receipt Date: 20100429
  Transmission Date: 20110831
  Serious: Yes (Hospitalization)
  Sender: FDA-Public Use
  Company Number: A0857299A

PATIENT
  Age: 77 Year
  Sex: Female

DRUGS (2)
  1. LAMICTAL [Suspect]
     Dosage: 150MG TWICE PER DAY
     Route: 048
     Dates: start: 20100101, end: 20100301
  2. DILANTIN [Concomitant]

REACTIONS (2)
  - DRUG INEFFECTIVE [None]
  - CONVULSION [None]
